FAERS Safety Report 12701827 (Version 1)
Quarter: 2016Q3

REPORT INFORMATION
  Report Type: Spontaneous
  Country: US (occurrence: None)
  Receive Date: 20160830
  Receipt Date: 20160830
  Transmission Date: 20161109
  Serious: No
  Sender: FDA-Public Use
  Company Number: None

PATIENT
  Age: 62 Year
  Sex: Male

DRUGS (1)
  1. HARVONI [Suspect]
     Active Substance: LEDIPASVIR\SOFOSBUVIR
     Indication: CHRONIC HEPATITIS C
     Dosage: 90-400MG
     Route: 048

REACTIONS (7)
  - Malaise [None]
  - Headache [None]
  - Oropharyngeal pain [None]
  - Inflammation [None]
  - Pyrexia [None]
  - Hepatic pain [None]
  - Chondrocalcinosis pyrophosphate [None]

NARRATIVE: CASE EVENT DATE: 20160829
